FAERS Safety Report 5216850-8 (Version None)
Quarter: 2007Q1

REPORT INFORMATION
  Report Type: 
  Country: None (occurrence: None)
  Receive Date: 20070119
  Receipt Date: 20070110
  Transmission Date: 20070707
  Serious: No
  Sender: FDA-Public Use
  Company Number: TPA2007A00056

PATIENT
  Sex: 0

DRUGS (1)
  1. ROZEREM [Suspect]

REACTIONS (1)
  - OVERDOSE [None]
